FAERS Safety Report 8784814 (Version 1)
Quarter: 2012Q4

REPORT INFORMATION
  Report Type: Report from Study
  Country: GB (occurrence: GB)
  Receive Date: 20120914
  Receipt Date: 20120914
  Transmission Date: 20130627
  Serious: Yes (Other)
  Sender: FDA-Public Use
  Company Number: GB-BRISTOL-MYERS SQUIBB COMPANY-16088643

PATIENT
  Age: 62 Year
  Sex: Female

DRUGS (8)
  1. ETOPOSIDE [Suspect]
     Indication: ACUTE MYELOID LEUKAEMIA
     Dates: start: 20110808, end: 20110817
  2. ETOPOSIDE [Suspect]
     Indication: MYELODYSPLASTIC SYNDROME
     Dates: start: 20110808, end: 20110817
  3. DAUNORUBICIN [Suspect]
     Indication: ACUTE MYELOID LEUKAEMIA
     Dates: start: 20110808, end: 20110817
  4. DAUNORUBICIN [Suspect]
     Indication: MYELODYSPLASTIC SYNDROME
     Dates: start: 20110808, end: 20110817
  5. ARA-C [Suspect]
     Indication: ACUTE MYELOID LEUKAEMIA
     Dosage: Soln for injection
     Dates: start: 20110808, end: 20110817
  6. ARA-C [Suspect]
     Indication: MYELODYSPLASTIC SYNDROME
     Dosage: Soln for injection
     Dates: start: 20110808, end: 20110817
  7. GEMTUZUMAB OZOGAMICIN [Suspect]
     Indication: MYELODYSPLASTIC SYNDROME
     Dates: start: 20110808, end: 20110817
  8. GEMTUZUMAB OZOGAMICIN [Suspect]
     Indication: ACUTE MYELOID LEUKAEMIA
     Dates: start: 20110808, end: 20110817

REACTIONS (1)
  - Vaginal haemorrhage [Recovered/Resolved]
